FAERS Safety Report 22346109 (Version 1)
Quarter: 2023Q2

REPORT INFORMATION
  Report Type: Spontaneous
  Country: US (occurrence: None)
  Receive Date: 20230519
  Receipt Date: 20230519
  Transmission Date: 20230721
  Serious: No
  Sender: FDA-Public Use
  Company Number: None

PATIENT
  Age: 40 Year
  Sex: Female
  Weight: 92.53 kg

DRUGS (1)
  1. PREGABALIN [Suspect]
     Active Substance: PREGABALIN
     Indication: Fibromyalgia
     Dosage: FREQUENCY : 3 TIMES A DAY;?

REACTIONS (3)
  - Drug ineffective [None]
  - Product substitution issue [None]
  - Inadequate analgesia [None]

NARRATIVE: CASE EVENT DATE: 20230518
